FAERS Safety Report 13648040 (Version 1)
Quarter: 2017Q2

REPORT INFORMATION
  Report Type: Spontaneous
  Country: BE (occurrence: BE)
  Receive Date: 20170613
  Receipt Date: 20170613
  Transmission Date: 20170830
  Serious: Yes (Life-Threatening, Other)
  Sender: FDA-Public Use
  Company Number: BE-JNJFOC-20170609087

PATIENT
  Age: 74 Year
  Sex: Male
  Weight: 89 kg

DRUGS (6)
  1. DEXAMETHASONE. [Concomitant]
     Active Substance: DEXAMETHASONE
     Indication: PREMEDICATION
     Route: 065
  2. XANTHIUM [Concomitant]
     Route: 048
  3. YONDELIS [Suspect]
     Active Substance: TRABECTEDIN
     Indication: SOFT TISSUE SARCOMA
     Route: 042
     Dates: start: 20170309
  4. YONDELIS [Suspect]
     Active Substance: TRABECTEDIN
     Indication: SOFT TISSUE SARCOMA
     Dosage: CYCLE 1
     Route: 042
     Dates: start: 20170215, end: 2017
  5. DIFLUCAN [Concomitant]
     Active Substance: FLUCONAZOLE
     Route: 048
  6. GLUCOPHAGE [Concomitant]
     Active Substance: METFORMIN HYDROCHLORIDE
     Route: 048

REACTIONS (1)
  - Ventricular tachycardia [Recovered/Resolved]

NARRATIVE: CASE EVENT DATE: 20170322
